FAERS Safety Report 4957385-7 (Version None)
Quarter: 2006Q1

REPORT INFORMATION
  Report Type: 
  Country: None (occurrence: None)
  Receive Date: 20060327
  Receipt Date: 20060315
  Transmission Date: 20060701
  Serious: Yes (Other)
  Sender: FDA-Public Use
  Company Number: HQWYE888017FEB06

PATIENT
  Age: 61 Year
  Sex: Male
  Weight: 89.35 kg

DRUGS (3)
  1. CYCLOSPORINE [Suspect]
     Indication: PROPHYLAXIS AGAINST TRANSPLANT REJECTION
     Dates: start: 20040204, end: 20050209
  2. RAPAMUNE [Suspect]
     Indication: PROPHYLAXIS AGAINST TRANSPLANT REJECTION
     Dosage: 2 MG 1X PER 1 DAY ORAL
     Route: 048
  3. CELLCEPT [Concomitant]

REACTIONS (3)
  - CHOLANGITIS [None]
  - DRUG INEFFECTIVE [None]
  - LIVER TRANSPLANT REJECTION [None]
